FAERS Safety Report 16986345 (Version 1)
Quarter: 2019Q4

REPORT INFORMATION
  Report Type: Spontaneous
  Country: JP (occurrence: JP)
  Receive Date: 20191101
  Receipt Date: 20191101
  Transmission Date: 20200122
  Serious: Yes (Life-Threatening, Hospitalization)
  Sender: FDA-Public Use
  Company Number: JP-CELGENEUS-JPN-20191100089

PATIENT
  Age: 70 Year
  Sex: Male
  Weight: 48.9 kg

DRUGS (5)
  1. BEVACIZUMAB. [Suspect]
     Active Substance: BEVACIZUMAB
     Indication: LUNG ADENOCARCINOMA
     Route: 041
     Dates: start: 20141001, end: 20141224
  2. PREDNISOLONE. [Suspect]
     Active Substance: PREDNISOLONE
     Indication: INTERSTITIAL LUNG DISEASE
     Dosage: 15 MILLIGRAM
     Route: 048
     Dates: start: 20140222, end: 20150626
  3. ABRAXANE [Suspect]
     Active Substance: PACLITAXEL
     Dosage: 145 MILLIGRAM
     Route: 041
     Dates: start: 20150401, end: 20150408
  4. BEVACIZUMAB. [Suspect]
     Active Substance: BEVACIZUMAB
     Dosage: 720 MILLIGRAM
     Route: 041
     Dates: start: 20150401, end: 20150401
  5. ABRAXANE [Suspect]
     Active Substance: PACLITAXEL
     Indication: LUNG ADENOCARCINOMA
     Route: 041
     Dates: start: 20141001, end: 20141224

REACTIONS (3)
  - Large intestine perforation [Recovered/Resolved with Sequelae]
  - Peritonitis [Recovered/Resolved with Sequelae]
  - Stomatitis [Unknown]

NARRATIVE: CASE EVENT DATE: 20150412
